FAERS Safety Report 15789815 (Version 2)
Quarter: 2019Q1

REPORT INFORMATION
  Report Type: Spontaneous
  Country: US (occurrence: US)
  Receive Date: 20190104
  Receipt Date: 20190205
  Transmission Date: 20190417
  Serious: Yes (Hospitalization, Other)
  Sender: FDA-Public Use
  Company Number: US-PFIZER INC-2018536850

PATIENT
  Age: 76 Year
  Sex: Male

DRUGS (4)
  1. AMLODIPINE BESILATE [Suspect]
     Active Substance: AMLODIPINE BESYLATE
     Dosage: 100 MG (20 DF) OVER A PERIOD OF 24 HOURS
     Route: 048
  2. AMLODIPINE BESILATE [Suspect]
     Active Substance: AMLODIPINE BESYLATE
     Dosage: 5 MG, DAILY (STARTED 3 MONTHS EARLIER)
  3. WARFARIN [Concomitant]
     Active Substance: WARFARIN
     Dosage: UNK UNK, DAILY (6 TO 7 MG)
  4. BENAZEPRIL [Concomitant]
     Active Substance: BENAZEPRIL HYDROCHLORIDE
     Dosage: 40 MG, DAILY (STARTED 6 MONTHS EARLIER)

REACTIONS (11)
  - Accidental overdose [Unknown]
  - Shock [Unknown]
  - Pulmonary oedema [Unknown]
  - Hepatic function abnormal [Unknown]
  - Cardiac failure congestive [Unknown]
  - Acute kidney injury [Unknown]
  - Hepatic congestion [Unknown]
  - Circulatory collapse [Unknown]
  - Hypotension [Unknown]
  - Jaundice [Unknown]
  - Myocardial depression [Unknown]
